FAERS Safety Report 5307110-5 (Version None)
Quarter: 2007Q2

REPORT INFORMATION
  Report Type: 
  Country: None (occurrence: None)
  Receive Date: 20070425
  Receipt Date: 20070413
  Transmission Date: 20071010
  Serious: Yes (Hospitalization)
  Sender: FDA-Public Use
  Company Number: FRWYE168215JAN07

PATIENT
  Sex: Female
  Weight: 89 kg

DRUGS (31)
  1. ENBREL [Suspect]
     Indication: RHEUMATOID ARTHRITIS
     Route: 058
     Dates: start: 20060101, end: 20060315
  2. ENBREL [Suspect]
     Route: 058
     Dates: start: 20060316, end: 20060620
  3. ENBREL [Suspect]
     Dosage: UNKNOWN
     Route: 058
     Dates: start: 20060701, end: 20061229
  4. METHOTREXATE [Suspect]
     Indication: RHEUMATOID ARTHRITIS
     Dosage: UNKNOWN
     Route: 048
  5. TRACLEER [Concomitant]
  6. DITROPAN [Concomitant]
     Dosage: 15 MG TOTAL DAILY
     Route: 048
  7. NEXIUM [Concomitant]
     Dosage: UNKNOWN
  8. NEXIUM [Concomitant]
     Dates: start: 20060701
  9. CORTANCYL [Concomitant]
     Indication: RHEUMATOID ARTHRITIS
     Dosage: 9 MG DAILY
     Route: 048
  10. CORTANCYL [Concomitant]
     Dosage: 8 MG DAILY
     Route: 048
     Dates: start: 20060316, end: 20060401
  11. CORTANCYL [Concomitant]
     Dosage: 7 MG DAILY
     Route: 048
     Dates: start: 20060401, end: 20060601
  12. CORTANCYL [Concomitant]
     Dosage: 6 MG DAILY
     Route: 048
     Dates: start: 20060601
  13. CORTANCYL [Concomitant]
     Dosage: 5 MG DAILY
     Route: 048
     Dates: start: 20060101, end: 20060801
  14. CORTANCYL [Concomitant]
     Dosage: 7 MG DAILY
     Route: 048
     Dates: start: 20060801
  15. DIFFU K [Concomitant]
     Dosage: UNKNOWN
     Route: 048
  16. DIFFU K [Concomitant]
     Route: 048
     Dates: start: 20060701
  17. PREVISCAN [Concomitant]
     Dosage: UNKNOWN
     Route: 048
  18. PREVISCAN [Concomitant]
     Dosage: UNKNOWN
     Route: 048
     Dates: start: 20060701
  19. ALDACTONE [Concomitant]
     Route: 048
  20. SILDENAFIL CITRATE [Concomitant]
     Dosage: UNKNOWN
     Route: 048
  21. LASIX [Concomitant]
  22. LASIX [Concomitant]
     Dates: start: 20060701
  23. FLOLAN [Concomitant]
     Indication: PULMONARY HYPERTENSION
     Dosage: 22 NG/KG/MIN
     Dates: start: 20050712, end: 20060101
  24. FLOLAN [Concomitant]
     Dosage: 24 NG/KG/MIN
     Dates: start: 20060101, end: 20060630
  25. FLOLAN [Concomitant]
     Dosage: TO BE INCREASED BY 1 NG EVERY 15 DAYS, TO BE UP TO 30 NG DAILY
     Dates: start: 20060701
  26. FOSAVANCE [Concomitant]
     Route: 048
  27. KALEORID [Concomitant]
     Route: 048
  28. FOSAMAX [Concomitant]
     Dosage: UNKNOWN
     Route: 048
  29. ENDOTELON [Concomitant]
     Dosage: UNKNOWN
     Route: 048
  30. STRUCTUM [Concomitant]
     Dosage: UNKNOWN
     Route: 048
  31. XALATAN [Concomitant]
     Dosage: UNKNOWN

REACTIONS (12)
  - ATRIOVENTRICULAR BLOCK COMPLETE [None]
  - BRONCHITIS [None]
  - CARDIAC INDEX DECREASED [None]
  - CONDITION AGGRAVATED [None]
  - DRUG EFFECT DECREASED [None]
  - DYSPNOEA AT REST [None]
  - DYSPNOEA EXERTIONAL [None]
  - PULMONARY ARTERIAL PRESSURE INCREASED [None]
  - PULMONARY HYPERTENSION [None]
  - PULMONARY VASCULAR RESISTANCE ABNORMALITY [None]
  - RHEUMATOID ARTHRITIS [None]
  - RIGHT VENTRICULAR FAILURE [None]
